FAERS Safety Report 7402660-X (Version None)
Quarter: 2011Q1

REPORT INFORMATION
  Report Type: 
  Country: None (occurrence: None)
  Receive Date: 20110301
  Receipt Date: 20100512
  Transmission Date: 20110831
  Serious: Yes (Hospitalization, Other)
  Sender: FDA-Public Use
  Company Number: US-JNJFOC-20100508517

PATIENT
  Age: 47 Year
  Sex: Female
  Weight: 95.2554 kg

DRUGS (11)
  1. IBUPROFEN [Suspect]
     Indication: ARTHRALGIA
     Dosage: 400 MG, 1 IN 1 AS NECESSARY, ORAL
     Route: 048
     Dates: start: 20091029
  2. NEXIUM [Concomitant]
  3. TRAZODONE HCL [Concomitant]
  4. VITAMIN (VITAMINS NOS) [Concomitant]
  5. FERROUS SULFATE TAB [Concomitant]
  6. HYDROCODONE (HYDROCODONE) [Concomitant]
  7. TRAMADOL (TRAMADOL) [Concomitant]
  8. TANEZUMAB (MONOCLONAL ANTIBODIES) [Suspect]
     Indication: OSTEOARTHRITIS
     Dosage: 1 ML, 1 IN 8 WEEK, SUBCUTANEOUS
     Route: 058
     Dates: start: 20091228, end: 20100225
  9. CYCLOBENZAPRINE [Concomitant]
  10. ARTHROTEC [Suspect]
     Indication: ARTHRALGIA
     Dosage: 75 MG, 2 IN 1 DAY, ORAL
     Route: 048
     Dates: start: 20091029
  11. VITAMIN D [Concomitant]

REACTIONS (1)
  - MYOCARDIAL INFARCTION [None]
